FAERS Safety Report 8349086-2 (Version None)
Quarter: 2012Q2

REPORT INFORMATION
  Report Type: 
  Country: None (occurrence: None)
  Receive Date: 20120510
  Receipt Date: 20120503
  Transmission Date: 20120825
  Serious: Yes (Other)
  Sender: FDA-Public Use
  Company Number: US-UCBSA-053903

PATIENT
  Sex: Male

DRUGS (2)
  1. CIMZIA [Suspect]
     Indication: RHEUMATOID ARTHRITIS
     Dosage: 400 MG 0-2-4 WEEKS AND LATER EVERY MONTH
     Route: 058
     Dates: start: 20110907, end: 20120201
  2. METHOTREXATE [Suspect]
     Dates: start: 20100601, end: 20120201

REACTIONS (1)
  - LEUKAEMIC LYMPHOMA [None]
